FAERS Safety Report 7109896-6 (Version None)
Quarter: 2010Q4

REPORT INFORMATION
  Report Type: 
  Country: None (occurrence: None)
  Receive Date: 20101118
  Receipt Date: 20101111
  Transmission Date: 20110411
  Serious: Yes (Hospitalization)
  Sender: FDA-Public Use
  Company Number: ES-B.I. PHARMACEUTICALS,INC./RIDGEFIELD-2010-DE-06343BY

PATIENT
  Age: 29 Year
  Sex: Male

DRUGS (4)
  1. PRITOR [Suspect]
     Indication: HYPERTENSION
     Dosage: 80 MG
     Route: 048
     Dates: start: 20100101, end: 20100923
  2. ENALAPRIL MALEATE [Suspect]
     Indication: NEPHROPATHY
     Dosage: 20 MG
     Route: 048
     Dates: start: 20090101, end: 20100923
  3. PRAVASTATINA [Concomitant]
     Indication: DYSLIPIDAEMIA
     Dosage: 10 MG
     Route: 048
     Dates: start: 20090101
  4. TACROLIMUS [Concomitant]

REACTIONS (1)
  - HYPONATRAEMIA [None]
